FAERS Safety Report 5492742-4 (Version None)
Quarter: 2007Q4

REPORT INFORMATION
  Report Type: 
  Country: None (occurrence: None)
  Receive Date: 20071023
  Receipt Date: 20071012
  Transmission Date: 20080405
  Serious: Yes (Other)
  Sender: FDA-Public Use
  Company Number: PHHO2007NL16944

PATIENT
  Age: 62 Year
  Sex: Male

DRUGS (5)
  1. VAA489A VAL_AML+ [Suspect]
     Indication: ESSENTIAL HYPERTENSION
     Route: 048
  2. BETA BLOCKING AGENTS [Concomitant]
  3. IRBESARTAN [Concomitant]
  4. ATENOLOL [Concomitant]
  5. MICONAZOLE [Suspect]

REACTIONS (5)
  - BLOOD PRESSURE INCREASED [None]
  - DRUG INEFFECTIVE [None]
  - ECZEMA [None]
  - PARAESTHESIA [None]
  - SKIN ODOUR ABNORMAL [None]
